FAERS Safety Report 9216819 (Version 5)
Quarter: 2013Q2

REPORT INFORMATION
  Report Type: Spontaneous
  Country: US (occurrence: US)
  Receive Date: 20130408
  Receipt Date: 20130514
  Transmission Date: 20140414
  Serious: Yes (Hospitalization, Other)
  Sender: FDA-Public Use
  Company Number: US-PFIZER INC-2013106711

PATIENT
  Age: 65 Year
  Sex: Male
  Weight: 56.24 kg

DRUGS (15)
  1. SUTENT [Suspect]
     Indication: METASTATIC RENAL CELL CARCINOMA
     Dosage: 50 MG, DAILY 2WEEKS ON/1 WEEKS OFF
     Route: 048
     Dates: start: 20130327, end: 20130501
  2. SUTENT [Suspect]
     Dosage: 50 MG, 1X/DAY (FOUR WEEKS ON AND TWO WEEKS OFF)
     Route: 048
     Dates: start: 20130328, end: 20130501
  3. ZOMETA [Concomitant]
     Dosage: UNK
  4. ZOFRAN [Concomitant]
     Dosage: UNK
  5. MS CONTIN [Concomitant]
     Dosage: UNK
  6. DEXAMETHASONE [Concomitant]
     Dosage: UNK
  7. MIRALAX [Concomitant]
     Dosage: UNK
  8. REGLAN [Concomitant]
     Indication: NAUSEA
     Dosage: 10 MG, 2X/DAY (Q 12H)
  9. PREVACID [Concomitant]
     Dosage: UNK
  10. ENALAPRIL [Concomitant]
     Dosage: UNK
  11. MORPHINE [Concomitant]
     Indication: COMPRESSION FRACTURE
     Dosage: 1 MG, 2X/DAY
  12. PRILOSEC [Concomitant]
     Indication: GASTROOESOPHAGEAL REFLUX DISEASE
     Dosage: 40 MG, 2X/DAY
  13. FLAGYL [Concomitant]
     Dosage: UNK
  14. LEVAQUIN [Concomitant]
     Dosage: UNK
  15. MAGIC MOUTHWASH [Concomitant]
     Dosage: UNK

REACTIONS (14)
  - Cholecystitis [Recovering/Resolving]
  - Glossodynia [Unknown]
  - Somnolence [Unknown]
  - Nasopharyngitis [Unknown]
  - Oral discomfort [Recovering/Resolving]
  - Body temperature fluctuation [Unknown]
  - Gastric disorder [Unknown]
  - Ulcer [Unknown]
  - Nausea [Unknown]
  - Spinal compression fracture [Unknown]
  - Hiccups [Unknown]
  - Fatigue [Not Recovered/Not Resolved]
  - Glossodynia [Not Recovered/Not Resolved]
  - Thrombocytopenia [Recovered/Resolved]
